FAERS Safety Report 7038554-1 (Version None)
Quarter: 2010Q4

REPORT INFORMATION
  Report Type: 
  Country: None (occurrence: None)
  Receive Date: 20101011
  Receipt Date: 20100701
  Transmission Date: 20110411
  Serious: Yes (Other)
  Sender: FDA-Public Use
  Company Number: US-PFIZER INC-2010082951

PATIENT
  Sex: Female
  Weight: 48.526 kg

DRUGS (8)
  1. NEURONTIN [Suspect]
     Indication: NEUROPATHY PERIPHERAL
     Dosage: 300 MG, 1X/DAY
     Route: 048
     Dates: start: 20100101, end: 20100101
  2. LYRICA [Suspect]
     Indication: NEUROPATHY PERIPHERAL
     Dosage: 50 MG, 1X/DAY
     Route: 048
     Dates: start: 20100101
  3. LYRICA [Suspect]
     Dosage: UNK, TWO TIMES A DAY
  4. LYRICA [Suspect]
     Dosage: UNK, THREE TIMES A DAY
     Dates: end: 20100601
  5. BENAZEPRIL [Concomitant]
     Dosage: 20 MG, 1X/DAY
     Route: 048
  6. SYNTHROID [Concomitant]
     Indication: THYROID DISORDER
     Dosage: 75 UG, 1X/DAY
     Route: 048
     Dates: start: 20070101
  7. NORCO [Concomitant]
     Indication: MUSCULOSKELETAL PAIN
     Dosage: 10/325
     Route: 048
     Dates: start: 20100101
  8. FENTANYL [Concomitant]
     Indication: MUSCULOSKELETAL PAIN
     Dosage: 100 MG, UNK
     Route: 062
     Dates: start: 20100101

REACTIONS (6)
  - BLISTER [None]
  - GAIT DISTURBANCE [None]
  - INTENTIONAL SELF-INJURY [None]
  - OEDEMA [None]
  - PAIN [None]
  - SOMNOLENCE [None]
